FAERS Safety Report 9922253 (Version 1)
Quarter: 2014Q1

REPORT INFORMATION
  Report Type: Spontaneous
  Country: US (occurrence: None)
  Receive Date: 20140224
  Receipt Date: 20140224
  Transmission Date: 20141002
  Serious: Yes (Other)
  Sender: FDA-Public Use
  Company Number: None

PATIENT
  Age: 61 Year
  Sex: Female
  Weight: 81.65 kg

DRUGS (1)
  1. LOTREL [Suspect]
     Indication: HYPERTENSION
     Route: 048
     Dates: start: 2008, end: 2014

REACTIONS (2)
  - Abdominal pain upper [None]
  - Cough [None]
